FAERS Safety Report 13840892 (Version 2)
Quarter: 2017Q3

REPORT INFORMATION
  Report Type: Report from Study
  Country: NL (occurrence: NL)
  Receive Date: 20170807
  Receipt Date: 20170929
  Transmission Date: 20171127
  Serious: Yes (Life-Threatening, Hospitalization, Other)
  Sender: FDA-Public Use
  Company Number: NL-AMGEN-NLDSL2017117200

PATIENT
  Age: 82 Year
  Sex: Male

DRUGS (1)
  1. ARANESP [Suspect]
     Active Substance: DARBEPOETIN ALFA
     Indication: NEPHROGENIC ANAEMIA
     Dosage: 80 MUG, QWK
     Route: 058

REACTIONS (3)
  - Cardiac failure [Unknown]
  - Terminal state [Unknown]
  - Renal failure [Unknown]

NARRATIVE: CASE EVENT DATE: 2017
